FAERS Safety Report 15259641 (Version 1)
Quarter: 2018Q3

REPORT INFORMATION
  Report Type: Spontaneous
  Country: US (occurrence: US)
  Receive Date: 20180719
  Receipt Date: 20180719
  Transmission Date: 20181010
  Serious: Yes (Disabling)
  Sender: FDA-Public Use
  Company Number: None

PATIENT
  Age: 62 Year
  Sex: Female
  Weight: 64.35 kg

DRUGS (1)
  1. LEVEMIR [Suspect]
     Active Substance: INSULIN DETEMIR
     Indication: INSULIN RESISTANCE SYNDROME
     Route: 058
     Dates: start: 20180605, end: 20180716

REACTIONS (4)
  - Blood glucose decreased [None]
  - Incorrect dose administered by device [None]
  - Headache [None]
  - Device malfunction [None]

NARRATIVE: CASE EVENT DATE: 20180717
